FAERS Safety Report 5115071-7 (Version None)
Quarter: 2006Q3

REPORT INFORMATION
  Report Type: 
  Country: None (occurrence: None)
  Receive Date: 20060925
  Receipt Date: 20060925
  Transmission Date: 20061208
  Serious: Yes (Other)
  Sender: FDA-Public Use
  Company Number: None

PATIENT
  Sex: Male
  Weight: 65.7716 kg

DRUGS (1)
  1. VELCADE [Suspect]
     Indication: MANTLE CELL LYMPHOMA
     Dosage: 2 MG IV BOLUS
     Route: 040
     Dates: start: 20060721, end: 20060825

REACTIONS (3)
  - ANAEMIA [None]
  - HYPOTENSION [None]
  - RETINAL ARTERY OCCLUSION [None]
